FAERS Safety Report 7316001-X (Version None)
Quarter: 2011Q1

REPORT INFORMATION
  Report Type: 
  Country: None (occurrence: None)
  Receive Date: 20110225
  Receipt Date: 20110215
  Transmission Date: 20110831
  Serious: Yes (Hospitalization, Other)
  Sender: FDA-Public Use
  Company Number: PHHY2011BR12748

PATIENT
  Sex: Male
  Weight: 120 kg

DRUGS (3)
  1. RASILEZ HCT [Suspect]
     Dosage: 300/25 MG
  2. INSULIN [Concomitant]
     Indication: DIABETES MELLITUS
  3. AAS [Concomitant]

REACTIONS (4)
  - BLOOD PRESSURE DECREASED [None]
  - DIABETES MELLITUS [None]
  - BLOOD PRESSURE INCREASED [None]
  - BLOOD PRESSURE FLUCTUATION [None]
